FAERS Safety Report 21866127 (Version 2)
Quarter: 2023Q1

REPORT INFORMATION
  Report Type: Report from Study
  Country: KW (occurrence: KW)
  Receive Date: 20230116
  Receipt Date: 20230201
  Transmission Date: 20230418
  Serious: Yes (Other)
  Sender: FDA-Public Use
  Company Number: KW-002147023-NVSC2022KW221848

PATIENT
  Age: 52 Year
  Sex: Female

DRUGS (2)
  1. KISQALI [Suspect]
     Active Substance: RIBOCICLIB
     Indication: Breast cancer metastatic
     Dosage: 600 MG, QD
     Route: 048
     Dates: start: 20220927
  2. LANTUS [Concomitant]
     Active Substance: INSULIN GLARGINE
     Indication: Diabetes mellitus
     Dosage: UNK, QD ( ONCE AT NIGHT)
     Route: 065

REACTIONS (13)
  - Cerebrovascular accident [Recovering/Resolving]
  - Speech disorder [Recovering/Resolving]
  - Visual impairment [Recovering/Resolving]
  - Hot flush [Recovering/Resolving]
  - Hyperhidrosis [Recovering/Resolving]
  - Vitreous floaters [Unknown]
  - Hypertension [Unknown]
  - Pain [Not Recovered/Not Resolved]
  - Skin infection [Not Recovered/Not Resolved]
  - Headache [Recovering/Resolving]
  - Vomiting [Recovered/Resolved]
  - Vomiting [Recovering/Resolving]
  - Dizziness [Not Recovered/Not Resolved]

NARRATIVE: CASE EVENT DATE: 20220101
